FAERS Safety Report 10218462 (Version 2)
Quarter: 2014Q4

REPORT INFORMATION
  Report Type: Report from Study
  Country: NL (occurrence: NL)
  Receive Date: 20140605
  Receipt Date: 20141027
  Transmission Date: 20150528
  Serious: Yes (Death, Other)
  Sender: FDA-Public Use
  Company Number: PHHY2014NL067937

PATIENT
  Sex: Male

DRUGS (1)
  1. ZOMETA [Suspect]
     Active Substance: ZOLEDRONIC ACID
     Indication: PROSTATE CANCER METASTATIC
     Dosage: 4 MG PER 100 ML ONCE EVERY 4 WEEKS
     Route: 042

REACTIONS (3)
  - Prostate cancer [Fatal]
  - General physical health deterioration [Not Recovered/Not Resolved]
  - Terminal state [Fatal]
